FAERS Safety Report 9696398 (Version 3)
Quarter: 2014Q1

REPORT INFORMATION
  Report Type: Spontaneous
  Country: US (occurrence: US)
  Receive Date: 20131119
  Receipt Date: 20140106
  Transmission Date: 20141002
  Serious: Yes (Hospitalization, Other)
  Sender: FDA-Public Use
  Company Number: US-PFIZER INC-2013328338

PATIENT
  Age: 55 Year
  Sex: Female
  Weight: 70.3 kg

DRUGS (3)
  1. LYRICA [Suspect]
     Indication: FIBROMYALGIA
     Dosage: 150 MG, 1X/DAY
     Dates: start: 2007
  2. TRADOLAN [Suspect]
     Dosage: UNK
     Dates: start: 20110211
  3. FENTANYL [Concomitant]
     Dosage: 100 UG, UNK

REACTIONS (12)
  - Brain oedema [Unknown]
  - Intracranial aneurysm [Unknown]
  - Cerebrovascular accident [Unknown]
  - Convulsion [Unknown]
  - Coma [Unknown]
  - Ruptured cerebral aneurysm [Unknown]
  - Fall [Unknown]
  - Head injury [Unknown]
  - Headache [Unknown]
  - Encephalitis [Unknown]
  - Skin ulcer [Unknown]
  - Muscular weakness [Unknown]
